FAERS Safety Report 17992309 (Version 1)
Quarter: 2020Q3

REPORT INFORMATION
  Report Type: Spontaneous
  Country: US (occurrence: US)
  Receive Date: 20200707
  Receipt Date: 20200707
  Transmission Date: 20201103
  Serious: Yes (Other)
  Sender: FDA-Public Use
  Company Number: US-009507513-2006USA010917

PATIENT
  Sex: Female

DRUGS (2)
  1. STROMECTOL [Suspect]
     Active Substance: IVERMECTIN
     Dosage: UNK
  2. STROMECTOL [Suspect]
     Active Substance: IVERMECTIN
     Indication: SKIN INFECTION
     Dosage: UNK

REACTIONS (3)
  - Product use in unapproved indication [Unknown]
  - Myiasis [Not Recovered/Not Resolved]
  - Therapy non-responder [Unknown]
